FAERS Safety Report 4546538-8 (Version None)
Quarter: 2005Q1

REPORT INFORMATION
  Report Type: 
  Country: None (occurrence: None)
  Receive Date: 20050103
  Receipt Date: 20041214
  Transmission Date: 20050727
  Serious: Yes (Life-Threatening, Hospitalization)
  Sender: FDA-Public Use
  Company Number: US_0410107513

PATIENT
  Age: 60 Year
  Sex: Male

DRUGS (3)
  1. CYMBALTA [Suspect]
     Dosage: 60 MG/1 DAY
  2. METFORMIN HCL [Concomitant]
  3. GLIBENCLAMIDE [Concomitant]

REACTIONS (14)
  - ANOREXIA [None]
  - ANURIA [None]
  - CONFUSIONAL STATE [None]
  - DECREASED APPETITE [None]
  - DIALYSIS [None]
  - DIFFICULTY IN WALKING [None]
  - HICCUPS [None]
  - HYPERTENSION [None]
  - HYPOGLYCAEMIA [None]
  - INSULIN-REQUIRING TYPE II DIABETES MELLITUS [None]
  - KIDNEY ENLARGEMENT [None]
  - NAUSEA [None]
  - NEPHRITIS INTERSTITIAL [None]
  - RENAL FAILURE ACUTE [None]
